FAERS Safety Report 8077161-9 (Version None)
Quarter: 2012Q1

REPORT INFORMATION
  Report Type: 
  Country: None (occurrence: None)
  Receive Date: 20120127
  Receipt Date: 20120120
  Transmission Date: 20120608
  Serious: Yes (Other)
  Sender: FDA-Public Use
  Company Number: PHHY2012BR004937

PATIENT
  Sex: Female

DRUGS (3)
  1. ALDACTONE [Suspect]
     Dosage: UNK UKN, UNK
  2. HYGROTON [Suspect]
     Dosage: UNK UKN, UNK
  3. DIOVAN [Suspect]
     Dosage: 320 MG, UNK

REACTIONS (4)
  - ACCIDENT AT HOME [None]
  - PAIN [None]
  - HYPERSENSITIVITY [None]
  - LOWER LIMB FRACTURE [None]
